FAERS Safety Report 12512564 (Version 1)
Quarter: 2016Q2

REPORT INFORMATION
  Report Type: Spontaneous
  Country: US (occurrence: None)
  Receive Date: 20160629
  Receipt Date: 20160629
  Transmission Date: 20160815
  Serious: Yes (Life-Threatening, Hospitalization, Other)
  Sender: FDA-Public Use
  Company Number: None

PATIENT
  Age: 66 Year
  Sex: Female

DRUGS (9)
  1. GILENYA [Suspect]
     Active Substance: FINGOLIMOD HYDROCHLORIDE
     Indication: MULTIPLE SCLEROSIS
     Route: 048
     Dates: start: 20101210
  2. GILENYA [Concomitant]
     Active Substance: FINGOLIMOD HYDROCHLORIDE
  3. BELSOMRA [Concomitant]
     Active Substance: SUVOREXANT
  4. ROPINEROLE [Concomitant]
     Active Substance: ROPINIROLE
  5. CARVEDILOL. [Concomitant]
     Active Substance: CARVEDILOL
  6. LISINOPRIL. [Concomitant]
     Active Substance: LISINOPRIL
  7. LASIX [Concomitant]
     Active Substance: FUROSEMIDE
  8. SYNTHROID [Concomitant]
     Active Substance: LEVOTHYROXINE SODIUM
  9. GILENYA [Concomitant]
     Active Substance: FINGOLIMOD HYDROCHLORIDE

REACTIONS (2)
  - Posterior reversible encephalopathy syndrome [None]
  - Seizure [None]

NARRATIVE: CASE EVENT DATE: 20160419
